FAERS Safety Report 7324910-0 (Version None)
Quarter: 2011Q1

REPORT INFORMATION
  Report Type: 
  Country: None (occurrence: None)
  Receive Date: 20110301
  Receipt Date: 20110222
  Transmission Date: 20110831
  Serious: Yes (Other)
  Sender: FDA-Public Use
  Company Number: US-MERCK-1102USA02850

PATIENT
  Age: 54 Year
  Sex: Female

DRUGS (14)
  1. SINGULAIR [Suspect]
     Indication: COUGH
     Route: 048
     Dates: start: 20110120, end: 20110131
  2. ACIPHEX [Concomitant]
     Route: 065
  3. DEPLIN [Concomitant]
     Route: 065
  4. PROZAC [Concomitant]
     Route: 065
  5. BONIVA [Concomitant]
     Route: 065
  6. SEROQUEL [Concomitant]
     Route: 065
  7. SINGULAIR [Suspect]
     Indication: CONJUNCTIVITIS ALLERGIC
     Route: 048
     Dates: start: 20110120, end: 20110131
  8. LEVOTHYROXINE SODIUM [Concomitant]
     Route: 065
  9. TOPAMAX [Concomitant]
     Route: 065
  10. XANAX [Concomitant]
     Route: 065
  11. INTUNIV [Concomitant]
     Route: 065
  12. TEMAZEPAM [Concomitant]
     Route: 065
  13. MAXALT [Concomitant]
     Route: 048
  14. STRATTERA [Concomitant]
     Route: 065

REACTIONS (1)
  - SUICIDAL IDEATION [None]
